FAERS Safety Report 6420924-3 (Version None)
Quarter: 2009Q4

REPORT INFORMATION
  Report Type: 
  Country: None (occurrence: None)
  Receive Date: 20091030
  Receipt Date: 20091020
  Transmission Date: 20100525
  Serious: Yes (Death)
  Sender: FDA-Public Use
  Company Number: US-JNJFOC-20090908631

PATIENT
  Sex: Male
  Weight: 100.7 kg

DRUGS (1)
  1. RISPERDAL CONSTA [Suspect]
     Indication: SCHIZOPHRENIA
     Route: 030

REACTIONS (5)
  - DEATH [None]
  - DEVICE LEAKAGE [None]
  - DEVICE MALFUNCTION [None]
  - DEVICE OCCLUSION [None]
  - WRONG TECHNIQUE IN DRUG USAGE PROCESS [None]
